FAERS Safety Report 6653637-3 (Version None)
Quarter: 2010Q1

REPORT INFORMATION
  Report Type: 
  Country: None (occurrence: None)
  Receive Date: 20100326
  Receipt Date: 20100316
  Transmission Date: 20100710
  Serious: Yes (Other)
  Sender: FDA-Public Use
  Company Number: US-NOVOPROD-305725

PATIENT
  Sex: Female
  Weight: 97.959 kg

DRUGS (8)
  1. NOVOLIN N [Suspect]
     Indication: TYPE 2 DIABETES MELLITUS
     Dosage: UNK
     Route: 058
     Dates: start: 19910101
  2. NOVOLIN R [Suspect]
     Indication: TYPE 2 DIABETES MELLITUS
     Dosage: PRN
     Route: 058
     Dates: start: 19910101
  3. NOVOLOG MIX 70/30 [Suspect]
     Indication: TYPE 2 DIABETES MELLITUS
     Dosage: 54 IU BID
     Route: 058
  4. AVAPRO [Concomitant]
     Indication: BLOOD PRESSURE
     Dosage: UNK
  5. OSCAL                              /00108001/ [Concomitant]
     Indication: PROPHYLAXIS
     Dosage: UNK
     Route: 048
  6. TRICOR [Concomitant]
     Indication: BLOOD TRIGLYCERIDES
     Dosage: UNK
     Route: 048
  7. CLONIDINE                          /00171102/ [Concomitant]
     Indication: BLOOD PRESSURE
     Dosage: PM
     Route: 048
  8. SIMVASTATIN [Concomitant]
     Indication: DRUG USE FOR UNKNOWN INDICATION
     Dosage: UNK
     Route: 048

REACTIONS (1)
  - BLINDNESS [None]
